FAERS Safety Report 14993113 (Version 1)
Quarter: 2018Q2

REPORT INFORMATION
  Report Type: Spontaneous
  Country: DE (occurrence: US)
  Receive Date: 20180610
  Receipt Date: 20180610
  Transmission Date: 20180711
  Serious: No
  Sender: FDA-Public Use
  Company Number: DE-JNJFOC-20180540489

PATIENT
  Sex: Female

DRUGS (1)
  1. XARELTO [Suspect]
     Active Substance: RIVAROXABAN
     Indication: PRODUCT USED FOR UNKNOWN INDICATION
     Route: 048
     Dates: start: 20180518

REACTIONS (5)
  - Dyspnoea [Unknown]
  - Fatigue [Unknown]
  - Paraesthesia [Unknown]
  - Epistaxis [Unknown]
  - Listless [Unknown]

NARRATIVE: CASE EVENT DATE: 201805
